FAERS Safety Report 20534326 (Version 1)
Quarter: 2022Q1

REPORT INFORMATION
  Report Type: Spontaneous
  Country: FR (occurrence: FR)
  Receive Date: 20220302
  Receipt Date: 20220302
  Transmission Date: 20220423
  Serious: Yes (Hospitalization, Other)
  Sender: FDA-Public Use
  Company Number: FR-AFSSAPS-AVCN20220114

PATIENT
  Age: 18 Year
  Sex: Female

DRUGS (5)
  1. ALPRAZOLAM [Suspect]
     Active Substance: ALPRAZOLAM
     Indication: Product used for unknown indication
     Dosage: UNK (7.5 MG ONCE)
     Route: 048
     Dates: start: 20220128, end: 20220128
  2. HYDROXYZINE [Suspect]
     Active Substance: HYDROXYZINE HYDROCHLORIDE
     Indication: Product used for unknown indication
     Dosage: UNK (375MG IN ONE SHOT)
     Route: 048
     Dates: start: 20220128, end: 20220128
  3. MIRTAZAPINE [Suspect]
     Active Substance: MIRTAZAPINE
     Indication: Product used for unknown indication
     Dosage: UNK (180MG IN ONE TAKE)
     Route: 048
     Dates: start: 20220128, end: 20220128
  4. SERTRALINE [Suspect]
     Active Substance: SERTRALINE HYDROCHLORIDE
     Indication: Product used for unknown indication
     Dosage: UNK (1.4G IN ONE SHOT)
     Route: 048
     Dates: start: 20220128, end: 20220128
  5. CYAMEMAZINE [Suspect]
     Active Substance: CYAMEMAZINE
     Dosage: UNK (375MG IN ONE SHOT)
     Route: 048
     Dates: start: 20220128, end: 20220128

REACTIONS (4)
  - Drug abuse [Recovering/Resolving]
  - Depressed level of consciousness [Recovered/Resolved]
  - Toxicity to various agents [Recovered/Resolved]
  - Somnolence [Recovered/Resolved]

NARRATIVE: CASE EVENT DATE: 20210301
